FAERS Safety Report 7377753-6 (Version None)
Quarter: 2011Q1

REPORT INFORMATION
  Report Type: 
  Country: None (occurrence: None)
  Receive Date: 20110328
  Receipt Date: 20110321
  Transmission Date: 20110831
  Serious: Yes (Death)
  Sender: FDA-Public Use
  Company Number: GB-TEVA-272473ISR

PATIENT

DRUGS (2)
  1. SODIUM CHLORIDE [Suspect]
  2. GAVISCON [Suspect]

REACTIONS (1)
  - NECROTISING COLITIS [None]
